FAERS Safety Report 8924341 (Version 2)
Quarter: 2013Q1

REPORT INFORMATION
  Report Type: Report from Study
  Country: HU (occurrence: HU)
  Receive Date: 20121126
  Receipt Date: 20130208
  Transmission Date: 20140127
  Serious: Yes (Other)
  Sender: FDA-Public Use
  Company Number: HU-GLAXOSMITHKLINE-B0846603A

PATIENT
  Age: 44 Year
  Sex: Female

DRUGS (1)
  1. SERETIDE [Suspect]
     Indication: PRODUCT USED FOR UNKNOWN INDICATION
     Route: 055
     Dates: start: 20120803

REACTIONS (2)
  - Pulmonary haemorrhage [Recovered/Resolved]
  - Haemoptysis [Recovered/Resolved]
